FAERS Safety Report 24990989 (Version 1)
Quarter: 2025Q1

REPORT INFORMATION
  Report Type: Spontaneous
  Country: KR (occurrence: KR)
  Receive Date: 20250220
  Receipt Date: 20250220
  Transmission Date: 20250408
  Serious: Yes (Other)
  Sender: JOHNSON AND JOHNSON
  Company Number: KR-JNJFOC-20250225885

PATIENT
  Age: 69 Year
  Sex: Female

DRUGS (3)
  1. LAZERTINIB [Suspect]
     Active Substance: LAZERTINIB
     Indication: Non-small cell lung cancer
     Route: 048
  2. LAZERTINIB [Suspect]
     Active Substance: LAZERTINIB
     Route: 048
  3. LAZERTINIB [Suspect]
     Active Substance: LAZERTINIB
     Route: 048

REACTIONS (1)
  - Rhabdomyolysis [Unknown]
